FAERS Safety Report 16764154 (Version 1)
Quarter: 2019Q3

REPORT INFORMATION
  Report Type: Spontaneous
  Country: CN (occurrence: CN)
  Receive Date: 20190902
  Receipt Date: 20190902
  Transmission Date: 20191005
  Serious: Yes (Other)
  Sender: FDA-Public Use
  Company Number: CN-ACTELION-A-CH2019-195051

PATIENT
  Age: 8 Day
  Weight: 4.2 kg

DRUGS (2)
  1. BOSENTAN. [Suspect]
     Active Substance: BOSENTAN
     Indication: CONGENITAL CARDIOVASCULAR ANOMALY
     Dosage: 8.4 MG, BID
     Route: 048
  2. ILOPROST. [Suspect]
     Active Substance: ILOPROST
     Indication: CONGENITAL CARDIOVASCULAR ANOMALY
     Dosage: 2100 NG, 6-8 TIMES, QD

REACTIONS (6)
  - Angioplasty [Unknown]
  - Aortic stenosis [Unknown]
  - Pulmonary artery stenosis [Unknown]
  - Aortic surgery [Unknown]
  - Cyanosis [Unknown]
  - Dyspnoea [Unknown]
